FAERS Safety Report 8393961-X (Version None)
Quarter: 2012Q2

REPORT INFORMATION
  Report Type: 
  Country: None (occurrence: None)
  Receive Date: 20120517
  Receipt Date: 20120509
  Transmission Date: 20120825
  Serious: Yes (Hospitalization)
  Sender: FDA-Public Use
  Company Number: DSA_56468_2012

PATIENT
  Age: 81 Year
  Sex: Female

DRUGS (8)
  1. LEVOFLOXACIN [Suspect]
     Indication: ABSCESS INTESTINAL
     Dosage: (500 MG QD ORAL)
     Route: 048
     Dates: start: 20120224, end: 20120406
  2. SOTALOL HCL [Suspect]
     Indication: PRODUCT USED FOR UNKNOWN INDICATION
     Dosage: (160 MG, DAILY ORAL)
     Route: 048
  3. FLAGYL [Suspect]
     Indication: ABSCESS INTESTINAL
     Dosage: (500 MG TID ORAL)
     Route: 048
     Dates: start: 20120224, end: 20120406
  4. SUCRALFATE [Suspect]
     Indication: PRODUCT USED FOR UNKNOWN INDICATION
     Dosage: (2 G, DAILY ORAL)
     Route: 048
  5. MIANSERINE (MIANSERINE) 10 MG (NOT SPECIFIED) [Suspect]
     Indication: PRODUCT USED FOR UNKNOWN INDICATION
     Dosage: (10 MG QD ORAL)
     Route: 048
     Dates: end: 20120418
  6. MOTILIUM /00498201/ [Concomitant]
  7. ALPRAZOLAM [Suspect]
     Indication: PRODUCT USED FOR UNKNOWN INDICATION
     Dosage: (0.5 MG QD ORAL)
     Route: 048
  8. NITROGLYCERIN [Concomitant]

REACTIONS (11)
  - BLINDNESS CORTICAL [None]
  - SEPSIS [None]
  - NERVOUS SYSTEM DISORDER [None]
  - SPEECH DISORDER [None]
  - AXONAL NEUROPATHY [None]
  - DECREASED EYE CONTACT [None]
  - CONFUSIONAL STATE [None]
  - ABNORMAL BEHAVIOUR [None]
  - APHAGIA [None]
  - COLITIS [None]
  - METABOLIC ENCEPHALOPATHY [None]
